FAERS Safety Report 7205938-8 (Version None)
Quarter: 2011Q1

REPORT INFORMATION
  Report Type: 
  Country: None (occurrence: None)
  Receive Date: 20110103
  Receipt Date: 20101222
  Transmission Date: 20110831
  Serious: Yes (Death, Hospitalization)
  Sender: FDA-Public Use
  Company Number: US-BIOGENIDEC-2010BI042797

PATIENT
  Sex: Female

DRUGS (1)
  1. TYSABRI [Suspect]
     Indication: MULTIPLE SCLEROSIS
     Route: 042
     Dates: start: 20080627, end: 20101008

REACTIONS (10)
  - UROSEPSIS [None]
  - MOBILITY DECREASED [None]
  - CLOSTRIDIAL INFECTION [None]
  - DEMENTIA [None]
  - ABASIA [None]
  - INCONTINENCE [None]
  - DEATH [None]
  - URINARY TRACT INFECTION [None]
  - RENAL FAILURE [None]
  - WEIGHT INCREASED [None]
